FAERS Safety Report 9840498 (Version 1)
Quarter: 2013Q4

REPORT INFORMATION
  Report Type: Spontaneous
  Country: US (occurrence: None)
  Receive Date: 20131211
  Receipt Date: 20131211
  Transmission Date: 20140711
  Serious: No
  Sender: FDA-Public Use
  Company Number: ALL1-2012-02894

PATIENT
  Age: 6 Year
  Sex: Male

DRUGS (2)
  1. INTUNIV [Suspect]
     Indication: ATTENTION DEFICIT/HYPERACTIVITY DISORDER
     Dosage: 1/2 OF 1 MG TABLET 1X/DAY QD ORAL
     Route: 048
  2. RISPERDAL (RISPERIDONET) [Concomitant]

REACTIONS (2)
  - Syncope [None]
  - Drug prescribing error [None]
